FAERS Safety Report 9102187 (Version 1)
Quarter: 2013Q1

REPORT INFORMATION
  Report Type: Spontaneous
  Country: US (occurrence: US)
  Receive Date: 20130218
  Receipt Date: 20130218
  Transmission Date: 20140127
  Serious: No
  Sender: FDA-Public Use
  Company Number: US-BIOGENIDEC-2013BI012301

PATIENT
  Age: 36 Year
  Sex: Female

DRUGS (2)
  1. TYSABRI [Suspect]
     Indication: MULTIPLE SCLEROSIS
     Route: 042
     Dates: start: 20120116
  2. AVONEX [Concomitant]
     Indication: MULTIPLE SCLEROSIS
     Route: 030
     Dates: start: 20010406

REACTIONS (6)
  - Irritability [Recovered/Resolved]
  - Myalgia [Recovered/Resolved]
  - Migraine [Recovered/Resolved]
  - Feeling jittery [Recovered/Resolved]
  - Malaise [Recovered/Resolved]
  - Drug effect decreased [Recovered/Resolved]
